FAERS Safety Report 23052815 (Version 5)
Quarter: 2025Q2

REPORT INFORMATION
  Report Type: Report from Study
  Country: FR (occurrence: FR)
  Receive Date: 20231011
  Receipt Date: 20250424
  Transmission Date: 20250716
  Serious: Yes (Hospitalization, Other)
  Sender: AUROBINDO
  Company Number: FR-SANDOZ-SDZ2023FR034996

PATIENT
  Age: 67 Year
  Sex: Female

DRUGS (7)
  1. AMOXICILLIN\CLAVULANIC ACID [Suspect]
     Active Substance: AMOXICILLIN\CLAVULANIC ACID
     Indication: Interstitial lung disease
     Route: 065
  2. APIXABAN [Suspect]
     Active Substance: APIXABAN
     Indication: Pulmonary hypertension
     Dosage: 5 MILLIGRAM, ONCE A DAY (2.5 MILLIGRAM, BID)
     Route: 065
  3. AZITHROMYCIN [Suspect]
     Active Substance: AZITHROMYCIN
     Indication: Interstitial lung disease
     Route: 065
  4. LEVOFLOXACIN [Suspect]
     Active Substance: LEVOFLOXACIN
     Indication: Interstitial lung disease
     Route: 065
  5. APIXABAN [Suspect]
     Active Substance: APIXABAN
     Indication: Pulmonary hypertension
     Dosage: 5 MILLIGRAM, ONCE A DAY
     Route: 065
  6. RIOCIGUAT [Suspect]
     Active Substance: RIOCIGUAT
     Indication: Pulmonary hypertension
     Route: 065
  7. DAPAGLIFLOZIN [Concomitant]
     Active Substance: DAPAGLIFLOZIN
     Indication: Diabetes mellitus
     Route: 065

REACTIONS (2)
  - Interstitial lung disease [Unknown]
  - Drug ineffective [Unknown]
